FAERS Safety Report 18393690 (Version 3)
Quarter: 2020Q4

REPORT INFORMATION
  Report Type: Spontaneous
  Country: JP (occurrence: JP)
  Receive Date: 20201016
  Receipt Date: 20201103
  Transmission Date: 20210114
  Serious: Yes (Life-Threatening, Other)
  Sender: FDA-Public Use
  Company Number: JP-SA-2020SA290405

PATIENT

DRUGS (4)
  1. NEDAPLATIN [Suspect]
     Active Substance: NEDAPLATIN
     Dosage: AT INFUSION RATE 1.5 ML/MIN
     Route: 013
  2. DOCETAXEL. [Suspect]
     Active Substance: DOCETAXEL
     Dosage: AT INFUSION RATE 1.5 ML/MIN
     Route: 013
  3. NEDAPLATIN [Suspect]
     Active Substance: NEDAPLATIN
     Indication: NASAL SINUS CANCER
     Dosage: INFUSED AT A RATE OF 3.0 ML/MIN
     Route: 013
  4. DOCETAXEL. [Suspect]
     Active Substance: DOCETAXEL
     Indication: NASAL SINUS CANCER
     Dosage: INFUSED AT A RATE OF 3.0 ML/MIN
     Route: 013

REACTIONS (2)
  - Cerebral haemorrhage [Recovered/Resolved]
  - Brain oedema [Recovered/Resolved]
